FAERS Safety Report 23572855 (Version 1)
Quarter: 2024Q1

REPORT INFORMATION
  Report Type: Spontaneous
  Country: US (occurrence: US)
  Receive Date: 20240227
  Receipt Date: 20240227
  Transmission Date: 20240410
  Serious: Yes (Death, Hospitalization, Other)
  Sender: FDA-Public Use
  Company Number: US-SANDOZ-SDZ2024US017674

PATIENT
  Age: 47 Year
  Sex: Male

DRUGS (1)
  1. PEMETREXED [Suspect]
     Active Substance: PEMETREXED
     Indication: Non-small cell lung cancer metastatic
     Dosage: 1.1 G EVERY THREE WEEKS OVER THE PAST EIGHT MONTHS
     Route: 065

REACTIONS (4)
  - Neoplasm malignant [Fatal]
  - Pseudocellulitis [Recovering/Resolving]
  - Deep vein thrombosis [Recovered/Resolved]
  - Thrombophlebitis [Unknown]
